FAERS Safety Report 23381471 (Version 1)
Quarter: 2024Q1

REPORT INFORMATION
  Report Type: Spontaneous
  Country: CN (occurrence: CN)
  Receive Date: 20240109
  Receipt Date: 20240109
  Transmission Date: 20240410
  Serious: Yes (Other)
  Sender: FDA-Public Use
  Company Number: CN-ROCHE-3486140

PATIENT
  Age: 57 Year
  Sex: Male
  Weight: 56 kg

DRUGS (2)
  1. ALTEPLASE [Suspect]
     Active Substance: ALTEPLASE
     Indication: Thrombolysis
     Dosage: 5.04 MG WERE INJECTED WITHIN 1 MINUTE?TOTAL DOSE 50 MG
     Route: 042
     Dates: start: 20231223, end: 20231223
  2. ALTEPLASE [Suspect]
     Active Substance: ALTEPLASE
     Dosage: REMAINING 45.36 MG WAS INJECTED WITHIN 1 HOUR?TOTAL DOSE 50 MG
     Route: 042
     Dates: start: 20231223, end: 20231223

REACTIONS (3)
  - Swollen tongue [Recovered/Resolved]
  - Stiff tongue [Recovered/Resolved]
  - Dyspnoea [Recovered/Resolved]

NARRATIVE: CASE EVENT DATE: 20231223
